FAERS Safety Report 9733133 (Version 2)
Quarter: 2013Q4

REPORT INFORMATION
  Report Type: Spontaneous
  Country: RU (occurrence: RU)
  Receive Date: 20131205
  Receipt Date: 20131218
  Transmission Date: 20140711
  Serious: Yes (Other)
  Sender: FDA-Public Use
  Company Number: RU-WATSON-2013-22030

PATIENT
  Age: 26 Year
  Sex: Female

DRUGS (3)
  1. DEPAKINE CHRONO [Suspect]
     Indication: PETIT MAL EPILEPSY
     Dosage: 600 MG, DAILY
     Route: 065
  2. TOPAMAX [Suspect]
     Indication: PETIT MAL EPILEPSY
     Dosage: 400 MG, DAILY
     Route: 065
  3. TOPAMAX [Suspect]
     Dosage: 200 MG, DAILY
     Route: 065

REACTIONS (2)
  - Convulsion [Recovered/Resolved]
  - Paradoxical drug reaction [Recovered/Resolved]
